FAERS Safety Report 8795894 (Version 1)
Quarter: 2012Q4

REPORT INFORMATION
  Report Type: 
  Country: FR (occurrence: FR)
  Receive Date: 20120920
  Receipt Date: 20120920
  Transmission Date: 20130627
  Serious: Yes (Hospitalization)
  Sender: FDA-Public Use
  Company Number: FR-009507513-1209FRA005877

PATIENT
  Age: 53 Year
  Sex: Female

DRUGS (14)
  1. REBETOL [Suspect]
     Indication: HEPATITIS C
     Dosage: 1000 mg, qd
     Route: 048
     Dates: start: 20120418
  2. REBETOL [Suspect]
     Dosage: 200 mg, qid
     Dates: start: 20120525
  3. REBETOL [Suspect]
     Dosage: 200 mg, bid
     Dates: start: 20120613
  4. TELAPREVIR [Suspect]
     Indication: HEPATITIS C
     Dosage: 750 mg, tid
     Route: 048
     Dates: start: 20120418, end: 20120705
  5. PEGASYS [Suspect]
     Indication: HEPATITIS C
     Dosage: 180 Microgram, qw
     Dates: start: 20120418
  6. TEMERIT [Concomitant]
     Indication: PRODUCT USED FOR UNKNOWN INDICATION
     Dosage: 5 mg, qam
     Route: 048
  7. SERESTA [Concomitant]
     Indication: PRODUCT USED FOR UNKNOWN INDICATION
     Dosage: 50 mg, qpm
     Route: 048
  8. SOLIAN [Concomitant]
     Indication: PRODUCT USED FOR UNKNOWN INDICATION
     Dosage: 100 mg, qpm
     Route: 048
  9. REVIA [Concomitant]
     Indication: PRODUCT USED FOR UNKNOWN INDICATION
     Dosage: 50 mg, qam
     Route: 048
  10. ZOLOFT [Concomitant]
     Indication: PRODUCT USED FOR UNKNOWN INDICATION
     Dosage: 50 mg, qam
     Route: 048
  11. NOCTAMIDE [Concomitant]
     Indication: PRODUCT USED FOR UNKNOWN INDICATION
     Dosage: 2 mg, qpm
     Route: 048
  12. ATARAX (ALPRAZOLAM) [Concomitant]
     Indication: PRODUCT USED FOR UNKNOWN INDICATION
     Dosage: 25 mg, qpm
     Route: 048
  13. NEORECORMON [Concomitant]
     Indication: PRODUCT USED FOR UNKNOWN INDICATION
     Dosage: 30000 IU, qw
     Dates: start: 20120523, end: 20120808
  14. INEXIUM [Concomitant]
     Indication: PRODUCT USED FOR UNKNOWN INDICATION
     Dosage: 20 mg, qd
     Route: 048

REACTIONS (2)
  - Anaemia [Recovered/Resolved]
  - Vomiting [Not Recovered/Not Resolved]
